FAERS Safety Report 9255011 (Version 1)
Quarter: 2013Q2

REPORT INFORMATION
  Report Type: Report from Study
  Country: NL (occurrence: NL)
  Receive Date: 20130425
  Receipt Date: 20130425
  Transmission Date: 20140414
  Serious: Yes (Hospitalization, Other)
  Sender: FDA-Public Use
  Company Number: NL-ABBOTT-13P-114-1079760-00

PATIENT
  Age: 41 Year
  Sex: Female
  Weight: 66 kg

DRUGS (1)
  1. LUCRIN DEPOT [Suspect]
     Indication: ENDOMETRIOSIS
     Route: 058
     Dates: start: 20130129, end: 20130129

REACTIONS (7)
  - Coronary artery stenosis [Unknown]
  - Myocardial infarction [Recovered/Resolved]
  - Migraine [Recovered/Resolved]
  - Rash pruritic [Recovered/Resolved]
  - Eczema [Recovered/Resolved]
  - Skin burning sensation [Recovered/Resolved]
  - Night sweats [Recovered/Resolved]
